FAERS Safety Report 11152174 (Version 1)
Quarter: 2015Q2

REPORT INFORMATION
  Report Type: Spontaneous
  Country: US (occurrence: US)
  Receive Date: 20150601
  Receipt Date: 20150601
  Transmission Date: 20150821
  Serious: Yes (Other)
  Sender: FDA-Public Use
  Company Number: US-TEVA-565866USA

PATIENT
  Sex: Female

DRUGS (1)
  1. COPAXONE [Suspect]
     Active Substance: GLATIRAMER ACETATE
     Indication: MULTIPLE SCLEROSIS
     Route: 065
     Dates: start: 2003

REACTIONS (6)
  - Optic neuritis [Recovered/Resolved]
  - Hemiparesis [Recovered/Resolved]
  - Multiple sclerosis relapse [Unknown]
  - Lhermitte^s sign [Unknown]
  - Drug dose omission [Unknown]
  - Burning feet syndrome [Unknown]

NARRATIVE: CASE EVENT DATE: 2012
